FAERS Safety Report 4389508-5 (Version None)
Quarter: 2004Q3

REPORT INFORMATION
  Report Type: 
  Country: None (occurrence: None)
  Receive Date: 20040702
  Receipt Date: 20040621
  Transmission Date: 20050211
  Serious: Yes (Other)
  Sender: FDA-Public Use
  Company Number: GB-GLAXOSMITHKLINE-B0336367A

PATIENT
  Age: 79 Year
  Sex: Female
  Weight: 62 kg

DRUGS (5)
  1. MALARONE [Suspect]
     Indication: MALARIA PROPHYLAXIS
     Route: 048
     Dates: start: 20040323, end: 20040417
  2. RAMIPRIL [Concomitant]
     Dosage: 5MG PER DAY
     Route: 048
  3. FUROSEMIDE [Concomitant]
     Dosage: 20MG PER DAY
     Route: 048
  4. DOXAZOSIN [Concomitant]
     Dosage: 4MG PER DAY
     Route: 048
  5. AMITRIPTYLINE HCL [Concomitant]
     Dosage: 10MG PER DAY
     Route: 048

REACTIONS (2)
  - NAUSEA [None]
  - ORAL MUCOSAL BLISTERING [None]
